FAERS Safety Report 9204872 (Version 3)
Quarter: 2013Q2

REPORT INFORMATION
  Report Type: Spontaneous
  Country: US (occurrence: US)
  Receive Date: 20130402
  Receipt Date: 20130408
  Transmission Date: 20140414
  Serious: Yes (Other)
  Sender: FDA-Public Use
  Company Number: US-UCBSA-081062

PATIENT
  Age: 75 Year
  Sex: Male
  Weight: 106.59 kg

DRUGS (5)
  1. CIMZIA [Suspect]
     Indication: CROHN^S DISEASE
     Dates: start: 201302, end: 20130308
  2. HUMIRA [Concomitant]
     Dosage: UNKNOWN DOSE
     Dates: end: 201301
  3. LOSARTAN [Concomitant]
     Dosage: DAILY
  4. ATORVASTATIN [Concomitant]
     Dosage: DAILY
  5. LIALDA [Concomitant]

REACTIONS (3)
  - Herpes zoster [Recovered/Resolved]
  - Rash [Recovered/Resolved]
  - Pain [Recovering/Resolving]
